FAERS Safety Report 9393943 (Version 1)
Quarter: 2013Q3

REPORT INFORMATION
  Report Type: Spontaneous
  Country: US (occurrence: US)
  Receive Date: 20130710
  Receipt Date: 20130710
  Transmission Date: 20140515
  Serious: No
  Sender: FDA-Public Use
  Company Number: US-009507513-1306USA004068

PATIENT
  Sex: Male

DRUGS (1)
  1. PEGINTRON [Suspect]
     Dosage: REDIPEN, 120 MCG 1 STANDARD DOSE OF 1
     Dates: start: 20130510

REACTIONS (3)
  - Product quality issue [Unknown]
  - Drug dose omission [Unknown]
  - No adverse event [Unknown]
